FAERS Safety Report 25799147 (Version 1)
Quarter: 2025Q3

REPORT INFORMATION
  Report Type: Spontaneous
  Country: US (occurrence: US)
  Receive Date: 20250913
  Receipt Date: 20250913
  Transmission Date: 20251020
  Serious: No
  Sender: SANOFI AVENTIS
  Company Number: US-SA-2025SA273997

PATIENT
  Age: 66 Year
  Sex: Female

DRUGS (23)
  1. DUPIXENT [Suspect]
     Active Substance: DUPILUMAB
     Indication: Rhinitis allergic
     Dosage: 300 MG, QOW
     Route: 058
     Dates: start: 202508
  2. ALBUTEROL SULFATE [Concomitant]
     Active Substance: ALBUTEROL SULFATE
  3. COLACE [Concomitant]
     Active Substance: DOCUSATE SODIUM
  4. FLONASE ALLERGY RELIEF [Concomitant]
     Active Substance: FLUTICASONE PROPIONATE
  5. IPRATROPIUM [Concomitant]
     Active Substance: IPRATROPIUM
  6. LANTUS SOLOSTAR [Concomitant]
     Active Substance: INSULIN GLARGINE
  7. MUCINEX [Concomitant]
     Active Substance: GUAIFENESIN
  8. SYMBICORT [Concomitant]
     Active Substance: BUDESONIDE\FORMOTEROL FUMARATE DIHYDRATE
  9. CYANOCOBALAMIN [Concomitant]
     Active Substance: CYANOCOBALAMIN
  10. ATORVASTATIN [Concomitant]
     Active Substance: ATORVASTATIN
  11. CLONAZEPAM [Concomitant]
     Active Substance: CLONAZEPAM
  12. CYCLOBENZAPRINE [Concomitant]
     Active Substance: CYCLOBENZAPRINE
  13. DOXYCYCLINE [Concomitant]
     Active Substance: DOXYCYCLINE
  14. FENOFIBRATE [Concomitant]
     Active Substance: FENOFIBRATE
  15. LEVOTHYROXINE [Concomitant]
     Active Substance: LEVOTHYROXINE
  16. LISINOPRIL [Concomitant]
     Active Substance: LISINOPRIL
  17. LORATADINE [Concomitant]
     Active Substance: LORATADINE
  18. MONTELUKAST [Concomitant]
     Active Substance: MONTELUKAST
  19. NOVOLOG [Concomitant]
     Active Substance: INSULIN ASPART
  20. PANTOPRAZOLE [Concomitant]
     Active Substance: PANTOPRAZOLE
  21. PREGABALIN [Concomitant]
     Active Substance: PREGABALIN
  22. ROPINIROLE [Concomitant]
     Active Substance: ROPINIROLE
  23. FLUTICASONE [Concomitant]
     Active Substance: FLUTICASONE

REACTIONS (8)
  - Asthma [Not Recovered/Not Resolved]
  - Nasopharyngitis [Not Recovered/Not Resolved]
  - Productive cough [Not Recovered/Not Resolved]
  - Sneezing [Not Recovered/Not Resolved]
  - Laryngitis [Not Recovered/Not Resolved]
  - Chest discomfort [Not Recovered/Not Resolved]
  - Wheezing [Not Recovered/Not Resolved]
  - Product use in unapproved indication [Unknown]

NARRATIVE: CASE EVENT DATE: 20250101
